FAERS Safety Report 12426361 (Version 2)
Quarter: 2016Q4

REPORT INFORMATION
  Report Type: Spontaneous
  Country: US (occurrence: US)
  Receive Date: 20160601
  Receipt Date: 20161014
  Transmission Date: 20170207
  Serious: No
  Sender: FDA-Public Use
  Company Number: US-GLAXOSMITHKLINE-US2016GSK073344

PATIENT
  Age: 23 Year
  Sex: Female

DRUGS (1)
  1. LAMOTRIGINE PROLONGED-RELEASE TABLET [Suspect]
     Active Substance: LAMOTRIGINE
     Indication: TEMPORAL LOBE EPILEPSY

REACTIONS (2)
  - Feeling abnormal [Unknown]
  - Product substitution issue [Unknown]
